FAERS Safety Report 7796859-0 (Version None)
Quarter: 2011Q4

REPORT INFORMATION
  Report Type: 
  Country: None (occurrence: None)
  Receive Date: 20111005
  Receipt Date: 20110923
  Transmission Date: 20120403
  Serious: No
  Sender: FDA-Public Use
  Company Number: US-B.I. PHARMACEUTICALS,INC./RIDGEFIELD-2011-BP-22824BP

PATIENT
  Age: 76 Year
  Sex: Female

DRUGS (6)
  1. POTASSIUM [Concomitant]
     Indication: SUPPLEMENTATION THERAPY
  2. CARVEDILOL [Concomitant]
     Indication: HYPERTENSION
  3. PRADAXA [Suspect]
     Indication: ATRIAL FIBRILLATION
     Dosage: 300 MG
     Route: 048
     Dates: start: 20110820
  4. LISINOPRIL [Concomitant]
     Indication: HYPERTENSION
  5. DILTIAZEM HCL [Concomitant]
     Indication: HYPERTENSION
  6. HYDROCHLOROTHIAZIDE [Concomitant]
     Indication: HYPERTENSION

REACTIONS (4)
  - TONGUE BLISTERING [None]
  - INSOMNIA [None]
  - NERVOUSNESS [None]
  - ANGER [None]
